FAERS Safety Report 6560887-3 (Version None)
Quarter: 2010Q1

REPORT INFORMATION
  Report Type: 
  Country: None (occurrence: None)
  Receive Date: 20100129
  Receipt Date: 20090922
  Transmission Date: 20100710
  Serious: No
  Sender: FDA-Public Use
  Company Number: US-ABBOTT-09P-163-0599472-00

PATIENT
  Sex: Male
  Weight: 54.48 kg

DRUGS (4)
  1. HUMIRA [Suspect]
     Indication: CROHN'S DISEASE
     Route: 048
  2. PREDNISONE [Concomitant]
     Indication: CROHN'S DISEASE
  3. ZOFRAN [Concomitant]
     Indication: CROHN'S DISEASE
  4. PERCOCET [Concomitant]
     Indication: CROHN'S DISEASE

REACTIONS (1)
  - DRUG DOSE OMISSION [None]
